FAERS Safety Report 22678130 (Version 6)
Quarter: 2024Q4

REPORT INFORMATION
  Report Type: Report from Study
  Country: JP (occurrence: JP)
  Receive Date: 20230706
  Receipt Date: 20241224
  Transmission Date: 20250115
  Serious: Yes (Death, Hospitalization, Other)
  Sender: ALEXION PHARMACEUTICALS
  Company Number: 2023A144255

PATIENT
  Age: 75 Year
  Weight: 50 kg

DRUGS (2)
  1. DURVALUMAB [Suspect]
     Active Substance: DURVALUMAB
     Indication: Hepatocellular carcinoma
     Dosage: 1500 MILLIGRAM, Q4W
  2. TREMELIMUMAB [Suspect]
     Active Substance: TREMELIMUMAB
     Indication: Hepatocellular carcinoma
     Dosage: 300 MILLIGRAM

REACTIONS (8)
  - Diarrhoea [Not Recovered/Not Resolved]
  - Electrolyte imbalance [Fatal]
  - Vomiting [Fatal]
  - Nausea [Fatal]
  - Peripheral circulatory failure [Fatal]
  - Multiple organ dysfunction syndrome [Fatal]
  - Asthenia [Fatal]
  - Spinal cord injury [Fatal]
